FAERS Safety Report 15366645 (Version 1)
Quarter: 2018Q3

REPORT INFORMATION
  Report Type: Spontaneous
  Country: US (occurrence: US)
  Receive Date: 20180901
  Receipt Date: 20180901
  Transmission Date: 20181010
  Serious: Yes (Hospitalization)
  Sender: FDA-Public Use
  Company Number: None

PATIENT
  Age: 56 Year
  Sex: Male
  Weight: 72.45 kg

DRUGS (9)
  1. GARDEN OF LIFE DR. FORMULATED PROBIOTICS MEN^S DAILY CARE [Suspect]
     Active Substance: PROBIOTICS NOS
     Indication: ANTIBIOTIC THERAPY
     Dosage: ?          OTHER STRENGTH:CFU;QUANTITY:1 CAPSULE(S);?
     Route: 048
     Dates: start: 20180728, end: 20180729
  2. AMOXICILLIN 500 MG [Suspect]
     Active Substance: AMOXICILLIN
     Indication: SINUSITIS
     Dosage: ?          QUANTITY:1 CAPSULE(S);?
     Route: 048
     Dates: start: 20180727, end: 20180802
  3. VITAMIN D [Concomitant]
     Active Substance: CHOLECALCIFEROL
  4. TAMUCLDSIN [Concomitant]
  5. CALCIUM ACETATE. [Concomitant]
     Active Substance: CALCIUM ACETATE
  6. MULTIVITAMIN [Concomitant]
     Active Substance: VITAMINS
  7. AIRBORNE [Concomitant]
     Active Substance: HERBALS\MINERALS\VITAMINS
  8. DELZICOL [Concomitant]
     Active Substance: MESALAMINE
  9. DIPHENOXYLATE?ATROPINE [Concomitant]
     Active Substance: ATROPINE\DIPHENOXYLATE

REACTIONS (22)
  - Nausea [None]
  - Prostatomegaly [None]
  - Discomfort [None]
  - Ocular icterus [None]
  - Renal failure [None]
  - Diarrhoea haemorrhagic [None]
  - Kidney fibrosis [None]
  - Renal impairment [None]
  - Gastrointestinal inflammation [None]
  - Yellow skin [None]
  - Asthenia [None]
  - Gastrointestinal ulcer [None]
  - Hepatitis [None]
  - Vomiting [None]
  - Diarrhoea [None]
  - Abdominal pain [None]
  - Weight decreased [None]
  - Haemodialysis [None]
  - Dyschezia [None]
  - Myeloma cast nephropathy [None]
  - Hepatic steatosis [None]
  - Urinary tract infection [None]

NARRATIVE: CASE EVENT DATE: 20180803
